FAERS Safety Report 19092589 (Version 1)
Quarter: 2021Q2

REPORT INFORMATION
  Report Type: Spontaneous
  Country: CN (occurrence: CN)
  Receive Date: 20210405
  Receipt Date: 20210405
  Transmission Date: 20210717
  Serious: Yes (Disabling)
  Sender: FDA-Public Use
  Company Number: CN-BAXTER-2021BAX006298

PATIENT
  Age: 68 Year
  Sex: Female
  Weight: 58 kg

DRUGS (5)
  1. IMRECOXIB. [Suspect]
     Active Substance: IMRECOXIB
     Dosage: TABLET
     Route: 048
     Dates: start: 20210307, end: 20210315
  2. FLURBIPROFEN AXETIL [Suspect]
     Active Substance: FLURBIPROFEN AXETIL
     Indication: ANALGESIC THERAPY
     Route: 042
     Dates: start: 20210304, end: 20210307
  3. IMRECOXIB. [Suspect]
     Active Substance: IMRECOXIB
     Indication: ANALGESIC THERAPY
     Dosage: TABLETS
     Route: 048
     Dates: start: 20210228, end: 20210304
  4. SODIUM CHLORIDE. [Suspect]
     Active Substance: SODIUM CHLORIDE
     Indication: MEDICATION DILUTION
     Route: 042
     Dates: start: 20210304, end: 20210307
  5. 20% MANNITOL INJECTION [Suspect]
     Active Substance: MANNITOL
     Indication: SWELLING
     Route: 041
     Dates: start: 20210228, end: 20210315

REACTIONS (2)
  - Renal impairment [Recovering/Resolving]
  - Hepatic function abnormal [Recovering/Resolving]

NARRATIVE: CASE EVENT DATE: 20210315
